FAERS Safety Report 20043584 (Version 5)
Quarter: 2022Q2

REPORT INFORMATION
  Report Type: Spontaneous
  Country: CA (occurrence: CA)
  Receive Date: 20211108
  Receipt Date: 20220614
  Transmission Date: 20220720
  Serious: Yes (Other)
  Sender: FDA-Public Use
  Company Number: CA-CELLTRION INC.-2021CA014925

PATIENT

DRUGS (9)
  1. INFLECTRA [Suspect]
     Active Substance: INFLIXIMAB-DYYB
     Indication: Crohn^s disease
     Dosage: 5 MG/KG INDUCTION DOSES AT WEEK , 2 AND 6, THEN EVERY 8 WEEKS
     Route: 042
     Dates: start: 20210521
  2. INFLECTRA [Suspect]
     Active Substance: INFLIXIMAB-DYYB
     Dosage: 5 MG/KG INDUCTION DOSES AT WEEK , 2 AND 6, THEN EVERY 8 WEEKS
     Route: 042
     Dates: start: 20210629
  3. INFLECTRA [Suspect]
     Active Substance: INFLIXIMAB-DYYB
     Dosage: 5 MG/KG INDUCTION DOSES AT WEEK , 2 AND 6, THEN EVERY 8 WEEKS
     Route: 042
     Dates: start: 20210902, end: 20210902
  4. INFLECTRA [Suspect]
     Active Substance: INFLIXIMAB-DYYB
     Dosage: 5 MG/KG INDUCTION DOSES AT WEEK , 2 AND 6, THEN EVERY 8 WEEKS
     Route: 042
     Dates: start: 20211028
  5. INFLECTRA [Suspect]
     Active Substance: INFLIXIMAB-DYYB
     Dosage: 5 MG/KG INDUCTION DOSES AT WEEK , 2 AND 6, THEN EVERY 8 WEEKS
     Route: 042
     Dates: start: 20211222
  6. INFLECTRA [Suspect]
     Active Substance: INFLIXIMAB-DYYB
     Dosage: 5 MG/KG INDUCTION DOSES AT WEEK , 2 AND 6, THEN EVERY 8 WEEKS
     Route: 042
     Dates: start: 20220216
  7. INFLECTRA [Suspect]
     Active Substance: INFLIXIMAB-DYYB
     Dosage: 5 MG/KG INDUCTION DOSES AT WEEK , 2 AND 6, THEN EVERY 8 WEEKS
     Route: 042
     Dates: start: 20220408
  8. INFLECTRA [Suspect]
     Active Substance: INFLIXIMAB-DYYB
     Dosage: 5 MG/KG INDUCTION DOSES AT WEEK , 2 AND 6, THEN EVERY 8 WEEKS
     Route: 042
     Dates: start: 20220603
  9. PREDNISONE [Concomitant]
     Active Substance: PREDNISONE
     Dosage: 1 DF
     Route: 065
     Dates: start: 202104

REACTIONS (6)
  - Product dose omission in error [Unknown]
  - Crohn^s disease [Unknown]
  - Off label use [Unknown]
  - Intentional product use issue [Unknown]
  - Constipation [Unknown]
  - Anal fissure [Unknown]

NARRATIVE: CASE EVENT DATE: 20210902
